FAERS Safety Report 14666058 (Version 1)
Quarter: 2018Q1

REPORT INFORMATION
  Report Type: Spontaneous
  Country: DE (occurrence: DE)
  Receive Date: 20180321
  Receipt Date: 20180321
  Transmission Date: 20180509
  Serious: Yes (Other)
  Sender: FDA-Public Use
  Company Number: DE-TEVA-2018-DE-868570

PATIENT
  Age: 77 Year
  Sex: Female

DRUGS (12)
  1. FLECAINID [Concomitant]
     Active Substance: FLECAINIDE
  2. NITRO [Concomitant]
     Active Substance: NITROGLYCERIN
     Dosage: 2 PUFFS
  3. VITAMIN D [Concomitant]
     Active Substance: CHOLECALCIFEROL
  4. DIAZEPAM-RATIOPHARM 10 MG/ML TROPFEN ZUM EINNEHMEN [Suspect]
     Active Substance: DIAZEPAM
     Indication: SLEEP DISORDER
     Dosage: 20 GTT DAILY; 20 DROPS (1 ML SOLUTION) CONTAINS 10 MG DIAZEPAM, TOOK IN THE EVENING FOR YEARS
     Route: 048
  5. ISOPTIN [Concomitant]
     Active Substance: VERAPAMIL HYDROCHLORIDE
  6. MARCUMAR [Interacting]
     Active Substance: PHENPROCOUMON
     Dosage: SINCE 10 YEARS, 1/4 TABLET
     Dates: start: 2008
  7. RAMIPRIL 5 MG [Concomitant]
     Active Substance: RAMIPRIL
  8. TORASEMID 10 MG [Concomitant]
  9. HOGGAR NIGHT [Concomitant]
  10. CANDESARTAN 15 MG [Concomitant]
  11. NIFEDIPIN [Concomitant]
     Active Substance: NIFEDIPINE
  12. MAGNESIUM 400 MG [Concomitant]
     Indication: MUSCLE SPASMS

REACTIONS (4)
  - Low density lipoprotein increased [Unknown]
  - International normalised ratio increased [Unknown]
  - Product use issue [Unknown]
  - Drug interaction [Unknown]

NARRATIVE: CASE EVENT DATE: 20180307
